FAERS Safety Report 8261674-0 (Version None)
Quarter: 2012Q2

REPORT INFORMATION
  Report Type: 
  Country: None (occurrence: None)
  Receive Date: 20120405
  Receipt Date: 20120405
  Transmission Date: 20120825
  Serious: Yes (Other)
  Sender: FDA-Public Use
  Company Number: None

PATIENT
  Age: 52 Year
  Sex: Female
  Weight: 101.15 kg

DRUGS (1)
  1. CRESTOR [Suspect]
     Indication: AMNESIA

REACTIONS (4)
  - FEELING ABNORMAL [None]
  - EXPRESSIVE LANGUAGE DISORDER [None]
  - AMNESIA [None]
  - MENTAL IMPAIRMENT [None]
